FAERS Safety Report 6890444-0 (Version None)
Quarter: 2010Q3

REPORT INFORMATION
  Report Type: 
  Country: None (occurrence: None)
  Receive Date: 20100731
  Receipt Date: 20081111
  Transmission Date: 20110219
  Serious: No
  Sender: FDA-Public Use
  Company Number: US-PFIZER INC-2008091405

PATIENT
  Sex: Female

DRUGS (2)
  1. LIPITOR [Suspect]
  2. ZETIA [Concomitant]

REACTIONS (2)
  - BLOOD TRIGLYCERIDES ABNORMAL [None]
  - DIABETES MELLITUS INADEQUATE CONTROL [None]
